FAERS Safety Report 8965119 (Version 2)
Quarter: 2013Q2

REPORT INFORMATION
  Report Type: Spontaneous
  Country: US (occurrence: US)
  Receive Date: 20121213
  Receipt Date: 20130430
  Transmission Date: 20140414
  Serious: Yes (Hospitalization)
  Sender: FDA-Public Use
  Company Number: US-BAYER-2012-129364

PATIENT
  Age: 24 Year
  Sex: Female

DRUGS (9)
  1. BEYAZ [Suspect]
  2. YAZ [Suspect]
  3. KLONOPIN [Concomitant]
     Dosage: 0.5 MG, BID
     Dates: start: 20110902
  4. KLONOPIN [Concomitant]
     Dosage: 0.5 MG, UNK
     Route: 048
     Dates: start: 20110609
  5. RISPERDAL [Concomitant]
     Dosage: 1 MG, EACH DAY
     Dates: start: 20110902
  6. DEPAKOTE [Concomitant]
     Dosage: 500 MG, UNK
     Route: 048
     Dates: start: 20110609
  7. CELEXA [Concomitant]
     Dosage: 20 MG, UNK
     Route: 048
     Dates: start: 20110609
  8. OMEPRAZOLE [Concomitant]
     Dosage: 20 MG, UNK
     Route: 048
     Dates: start: 20110712
  9. APAP W/CODEINE [Concomitant]
     Dosage: 300/30MG
     Route: 048
     Dates: start: 20110712

REACTIONS (1)
  - Deep vein thrombosis [None]
